FAERS Safety Report 7124218-2 (Version None)
Quarter: 2010Q4

REPORT INFORMATION
  Report Type: 
  Country: None (occurrence: None)
  Receive Date: 20101126
  Receipt Date: 20101117
  Transmission Date: 20110411
  Serious: Yes (Hospitalization, Other)
  Sender: FDA-Public Use
  Company Number: DE-PFIZER INC-2010142407

PATIENT
  Age: 9 Month
  Sex: Male
  Weight: 8.53 kg

DRUGS (5)
  1. REFACTO [Suspect]
     Indication: FACTOR VIII DEFICIENCY
     Dosage: 500 IU, 3X/DAY
     Route: 042
     Dates: start: 20101006, end: 20101007
  2. REFACTO [Suspect]
     Dosage: 250 IU, 3X/DAY
     Route: 042
     Dates: start: 20101008, end: 20101010
  3. REFACTO [Suspect]
     Dosage: 250 IU, 2X/DAY
     Route: 042
     Dates: start: 20101011, end: 20101014
  4. REFACTO [Suspect]
     Dosage: 250 IU, 1X/DAY
     Dates: start: 20101015, end: 20101015
  5. REFACTO [Suspect]
     Dosage: UNKNOWN DOSE FOR FACTOR VIII RECOVERY TEST
     Dates: start: 20101102, end: 20101102

REACTIONS (2)
  - FACTOR VIII INHIBITION [None]
  - HAEMATOMA [None]
